FAERS Safety Report 20489182 (Version 1)
Quarter: 2022Q1

REPORT INFORMATION
  Report Type: Report from Study
  Country: US (occurrence: US)
  Receive Date: 20220218
  Receipt Date: 20220218
  Transmission Date: 20220424
  Serious: No
  Sender: FDA-Public Use
  Company Number: US-BIOVITRUM-2022US02341

PATIENT
  Age: 3 Year
  Sex: Male

DRUGS (1)
  1. KINERET [Suspect]
     Active Substance: ANAKINRA
     Indication: Autoinflammatory disease
     Route: 058
     Dates: start: 20220128

REACTIONS (2)
  - Gastroenteritis [Unknown]
  - Off label use [Unknown]

NARRATIVE: CASE EVENT DATE: 20220128
